FAERS Safety Report 7450695-3 (Version None)
Quarter: 2011Q2

REPORT INFORMATION
  Report Type: 
  Country: None (occurrence: None)
  Receive Date: 20110429
  Receipt Date: 20110429
  Transmission Date: 20111010
  Serious: Yes (Other)
  Sender: FDA-Public Use
  Company Number: None

PATIENT
  Sex: Female
  Weight: 90.7194 kg

DRUGS (2)
  1. KIRKLAND STOOL SOFTNER [Suspect]
     Indication: IRRITABLE BOWEL SYNDROME
     Dosage: DOCUSATE SODIUM 100MG 2 X'S DAY ORAL/MOUTH
     Route: 048
     Dates: start: 20110318
  2. KIRKLAND STOOL SOFTNER [Suspect]
     Indication: CONSTIPATION
     Dosage: DOCUSATE SODIUM 100MG 2 X'S DAY ORAL/MOUTH
     Route: 048
     Dates: start: 20110318

REACTIONS (10)
  - NAUSEA [None]
  - FEELING HOT [None]
  - ERYTHEMA [None]
  - LOSS OF CONSCIOUSNESS [None]
  - RASH [None]
  - BURNING SENSATION [None]
  - PYREXIA [None]
  - CHEST DISCOMFORT [None]
  - URTICARIA [None]
  - DYSPNOEA [None]
